FAERS Safety Report 17971484 (Version 1)
Quarter: 2020Q3

REPORT INFORMATION
  Report Type: Report from Study
  Country: JP (occurrence: JP)
  Receive Date: 20200701
  Receipt Date: 20200701
  Transmission Date: 20201103
  Serious: Yes (Hospitalization)
  Sender: FDA-Public Use
  Company Number: JP-B.I. PHARMACEUTICALS,INC./RIDGEFIELD-2020-NB-032222

PATIENT
  Age: 61 Year
  Sex: Male
  Weight: 62.3 kg

DRUGS (2)
  1. AFATINIB [Suspect]
     Active Substance: AFATINIB
     Route: 048
     Dates: start: 20200622
  2. AFATINIB [Suspect]
     Active Substance: AFATINIB
     Indication: PRODUCT USED FOR UNKNOWN INDICATION
     Route: 048
     Dates: start: 20200611, end: 20200615

REACTIONS (2)
  - Diarrhoea [Not Recovered/Not Resolved]
  - Enteritis infectious [Not Recovered/Not Resolved]

NARRATIVE: CASE EVENT DATE: 20200614
